FAERS Safety Report 15262254 (Version 5)
Quarter: 2019Q2

REPORT INFORMATION
  Report Type: Spontaneous
  Country: US (occurrence: US)
  Receive Date: 20180809
  Receipt Date: 20190517
  Transmission Date: 20190711
  Serious: Yes (Hospitalization)
  Sender: FDA-Public Use
  Company Number: US-ACTELION-A-NJ2017-152661

PATIENT
  Age: 41 Year
  Sex: Female

DRUGS (9)
  1. LETAIRIS [Suspect]
     Active Substance: AMBRISENTAN
     Dosage: 10 MG, UNK
     Route: 048
  2. VELETRI [Suspect]
     Active Substance: EPOPROSTENOL
     Indication: PULMONARY ARTERIAL HYPERTENSION
     Dosage: 76.5 NG/KG, PER MIN
     Route: 042
     Dates: start: 20141007
  3. ADCIRCA [Concomitant]
     Active Substance: TADALAFIL
     Dosage: 40 MG, QD
     Dates: start: 201004
  4. VELETRI [Suspect]
     Active Substance: EPOPROSTENOL
     Dosage: 74.5 NG/KG, PER MIN
     Route: 042
     Dates: start: 20160922
  5. VELETRI [Suspect]
     Active Substance: EPOPROSTENOL
     Dosage: 79.5 NG/KG, PER MIN
     Route: 042
  6. TADALAFIL. [Concomitant]
     Active Substance: TADALAFIL
  7. VELETRI [Suspect]
     Active Substance: EPOPROSTENOL
     Dosage: UNK
     Route: 042
     Dates: start: 2006
  8. VELETRI [Suspect]
     Active Substance: EPOPROSTENOL
     Dosage: 84 NG/KG, PER MIN
     Route: 042
     Dates: start: 20141006
  9. LETAIRIS [Suspect]
     Active Substance: AMBRISENTAN
     Indication: PRODUCT USED FOR UNKNOWN INDICATION
     Dosage: 5 MG, QD
     Route: 048
     Dates: start: 201210

REACTIONS (8)
  - Staphylococcal sepsis [Recovered/Resolved]
  - Pain in jaw [Unknown]
  - Haemorrhage [Unknown]
  - Device related infection [Recovered/Resolved]
  - Diarrhoea [Unknown]
  - Treatment noncompliance [Unknown]
  - Headache [Unknown]
  - Atrial tachycardia [Recovered/Resolved]

NARRATIVE: CASE EVENT DATE: 20180730
